FAERS Safety Report 9028948 (Version 3)
Quarter: 2014Q2

REPORT INFORMATION
  Report Type: Spontaneous
  Country: US (occurrence: US)
  Receive Date: 20130124
  Receipt Date: 20140624
  Transmission Date: 20141212
  Serious: Yes (Hospitalization)
  Sender: FDA-Public Use
  Company Number: US-SANOFI-AVENTIS-2013SA004878

PATIENT
  Age: 62 Year
  Sex: Male
  Weight: 97.1 kg

DRUGS (21)
  1. LASIX [Suspect]
     Indication: HYPERTENSION
     Route: 048
     Dates: start: 201207, end: 20121031
  2. LASIX [Suspect]
     Indication: HYPERTENSION
     Route: 048
     Dates: start: 20121101
  3. BLINDED THERAPY [Suspect]
     Indication: OSTEOARTHRITIS
     Dates: start: 20120920, end: 20121008
  4. ALDACTONE [Suspect]
     Indication: HYPERTENSION
     Route: 048
     Dates: start: 2011, end: 20121031
  5. HYDROCHLOROTHIAZIDE/LISINOPRIL [Suspect]
     Indication: HYPERTENSION
     Dosage: LISINOPRIL   20 MG/DAY?HYDROCHLOROTHIAZIDE 12.5 MG/DAY
     Route: 048
     Dates: start: 20121008, end: 20121031
  6. POTASSIUM CHLORIDE [Suspect]
     Indication: HYPOKALAEMIA
     Route: 048
     Dates: start: 2010, end: 20121031
  7. ESOMEPRAZOLE [Concomitant]
     Indication: GASTROINTESTINAL DISORDER
     Route: 048
     Dates: start: 20120920, end: 20121008
  8. PLAVIX [Concomitant]
     Indication: THROMBOTIC STROKE
     Dates: start: 2002
  9. ADVAIR [Concomitant]
     Indication: CHRONIC OBSTRUCTIVE PULMONARY DISEASE
     Dates: start: 2010
  10. SPIRONOLACTONE [Concomitant]
     Indication: HYPERTENSION
     Dates: start: 2011
  11. LISINOPRIL [Concomitant]
     Indication: HYPERTENSION
     Dates: start: 2011
  12. AMLODIPINE [Concomitant]
     Indication: HYPERTENSION
     Dates: start: 200506, end: 200507
  13. TRAZODONE [Concomitant]
     Indication: INSOMNIA
     Dates: start: 201203
  14. CRESTOR /UNK/ [Concomitant]
     Indication: HYPERLIPIDAEMIA
     Dates: start: 200506
  15. ALBUTEROL [Concomitant]
     Indication: ASTHMA
     Dates: start: 201202
  16. FOLIC ACID [Concomitant]
     Indication: NUTRITIONAL SUPPLEMENTATION
     Dates: start: 201208
  17. ASPIRIN [Concomitant]
     Indication: CARDIOVASCULAR DISORDER
     Dates: start: 200506
  18. ANDROGEL [Concomitant]
     Indication: HYPOGONADISM
     Dates: start: 20120815
  19. NEBIVOLOL [Concomitant]
     Indication: HYPERTENSION
     Dates: start: 20121018
  20. TYLENOL W/CODEINE NO. 3 [Concomitant]
     Indication: OSTEOARTHRITIS
     Dates: start: 2010
  21. MULTIVITAMINS [Concomitant]
     Indication: VITAMIN SUPPLEMENTATION
     Dates: start: 200506

REACTIONS (2)
  - Renal failure acute [Recovered/Resolved]
  - Hyperkalaemia [Recovered/Resolved]
